FAERS Safety Report 4937479-2 (Version None)
Quarter: 2006Q1

REPORT INFORMATION
  Report Type: 
  Country: None (occurrence: None)
  Receive Date: 20060309
  Receipt Date: 20051214
  Transmission Date: 20060701
  Serious: Yes (Death, Other)
  Sender: FDA-Public Use
  Company Number: US-AVENTIS-200520429US

PATIENT
  Sex: Female
  Weight: 69.09 kg

DRUGS (8)
  1. LOVENOX [Suspect]
     Indication: HYPERCOAGULATION
  2. LOVENOX [Suspect]
     Route: 058
  3. LOVENOX [Suspect]
     Dates: end: 20051213
  4. LOVENOX [Suspect]
     Dates: start: 20051213
  5. ASPIRIN [Concomitant]
     Indication: HYPERCOAGULATION
  6. ALDOMET [Concomitant]
     Indication: HYPERTENSION
  7. PRENATAL [Concomitant]
     Indication: PREGNANCY
     Dosage: DOSE: UNKNOWN
  8. FOLIC ACID [Concomitant]
     Indication: HYPERCOAGULATION

REACTIONS (7)
  - ABORTION SPONTANEOUS [None]
  - DRUG EXPOSURE DURING PREGNANCY [None]
  - HAEMORRHAGE INTRACRANIAL [None]
  - INTRA-UTERINE DEATH [None]
  - PLACENTAL DISORDER [None]
  - PREMATURE RUPTURE OF MEMBRANES [None]
  - THROMBOSIS [None]
